FAERS Safety Report 8514750-9 (Version None)
Quarter: 2012Q3

REPORT INFORMATION
  Report Type: 
  Country: None (occurrence: None)
  Receive Date: 20120711
  Receipt Date: 20120711
  Transmission Date: 20120928
  Serious: Yes (Life-Threatening, Hospitalization, Disabling)
  Sender: FDA-Public Use
  Company Number: None

PATIENT
  Sex: Female
  Weight: 70.3075 kg

DRUGS (2)
  1. BENADRYL [Suspect]
     Indication: MUSCLE SPASMS
     Dosage: UNKNOWN 2X IV
     Route: 042
     Dates: start: 20100926, end: 20100926
  2. DILAUDID [Suspect]
     Indication: MUSCLE SPASMS
     Dosage: UNKNOWN 2X IV
     Route: 042
     Dates: start: 20100926, end: 20100926

REACTIONS (13)
  - OXYGEN SATURATION DECREASED [None]
  - FEELING ABNORMAL [None]
  - ENCEPHALOPATHY [None]
  - MENTAL DISORDER [None]
  - EMOTIONAL DISORDER [None]
  - UNRESPONSIVE TO STIMULI [None]
  - GENERAL PHYSICAL HEALTH DETERIORATION [None]
  - IMMOBILE [None]
  - DRUG HYPERSENSITIVITY [None]
  - DELIRIUM [None]
  - APHASIA [None]
  - HYPOTENSION [None]
  - DISORIENTATION [None]
